FAERS Safety Report 9091155 (Version 1)
Quarter: 2013Q1

REPORT INFORMATION
  Report Type: Spontaneous
  Country: US (occurrence: US)
  Receive Date: 20130201
  Receipt Date: 20130201
  Transmission Date: 20140127
  Serious: No
  Sender: FDA-Public Use
  Company Number: US-009507513-1301USA014348

PATIENT
  Sex: Female
  Weight: 108.84 kg

DRUGS (1)
  1. IMPLANON [Suspect]
     Indication: CONTRACEPTION
     Dosage: 1 ROD FOR 3 YEAR USE OF THE LEFT ARM
     Route: 059
     Dates: start: 20111220

REACTIONS (2)
  - Muscle spasms [Unknown]
  - Menorrhagia [Unknown]
